FAERS Safety Report 8789463 (Version 1)
Quarter: 2012Q4

REPORT INFORMATION
  Report Type: Spontaneous
  Country: IT (occurrence: None)
  Receive Date: 20120906
  Receipt Date: 20120906
  Transmission Date: 20130627
  Serious: Yes (Life-Threatening, Hospitalization, Other)
  Sender: FDA-Public Use
  Company Number: 2012P1054981

PATIENT
  Age: 48 Year
  Sex: Male

DRUGS (6)
  1. AMOXICILLIN [Suspect]
     Indication: PHARYNGITIS
  2. SIMVASTATIN [Concomitant]
  3. ASPIRIN [Concomitant]
  4. TRANSDERMAL NITRATES [Concomitant]
  5. ATENOLOL [Concomitant]
  6. CLOPIDOGREL [Concomitant]

REACTIONS (11)
  - Urticaria [None]
  - Rash pruritic [None]
  - Malaise [None]
  - Device occlusion [None]
  - Coronary artery restenosis [None]
  - Blood pressure increased [None]
  - Myocardial infarction [None]
  - Eosinophilia [None]
  - C-reactive protein increased [None]
  - Blood immunoglobulin E increased [None]
  - Kounis syndrome [None]
